FAERS Safety Report 7328342-0 (Version None)
Quarter: 2011Q1

REPORT INFORMATION
  Report Type: 
  Country: None (occurrence: None)
  Receive Date: 20110303
  Receipt Date: 20110221
  Transmission Date: 20110831
  Serious: Yes (Other)
  Sender: FDA-Public Use
  Company Number: US-BRACCO-003741

PATIENT
  Sex: Female
  Weight: 109 kg

DRUGS (47)
  1. EPOGEN [Concomitant]
  2. LEVOTHYROXINE SODIUM [Concomitant]
  3. NEPHROCAPS [Concomitant]
  4. PHOSLO [Concomitant]
  5. PLAVIX [Concomitant]
  6. MAGNEVIST [Suspect]
     Indication: ANGIOGRAM
     Route: 065
     Dates: start: 19980824, end: 19980824
  7. PROAMATINE [Concomitant]
  8. IRON [Concomitant]
  9. PREDNISONE [Concomitant]
  10. CONTRAST MEDIA [Suspect]
     Indication: NUCLEAR MAGNETIC RESONANCE IMAGING BRAIN
     Route: 065
     Dates: start: 20020820, end: 20020820
  11. TRICOR [Concomitant]
  12. HOMATROPINE [Concomitant]
  13. ZOCOR [Concomitant]
  14. PARICALCITOL [Concomitant]
  15. ZOLOFT [Concomitant]
  16. ASPIRIN [Concomitant]
  17. RENAGEL [Concomitant]
  18. PRILOSEC [Concomitant]
  19. FLONASE [Concomitant]
  20. EPOGEN [Concomitant]
  21. RESTORIL [Concomitant]
  22. TIMOLOL [Concomitant]
  23. LIPITOR [Concomitant]
  24. PERCOCET [Concomitant]
  25. PROGRAF [Concomitant]
  26. SENSIPAR [Concomitant]
  27. VISIPAQUE [Concomitant]
     Indication: AORTOGRAM
     Route: 065
     Dates: start: 20050616, end: 20050616
  28. DIATX [Concomitant]
  29. CELEBREX [Concomitant]
  30. CELLCEPT [Concomitant]
     Indication: KIDNEY TRANSPLANT REJECTION
  31. MULTIHANCE [Suspect]
     Indication: NUCLEAR MAGNETIC RESONANCE IMAGING ABDOMINAL
     Route: 042
     Dates: start: 20050707, end: 20050707
  32. MAGNEVIST [Suspect]
     Indication: NUCLEAR MAGNETIC RESONANCE IMAGING
     Route: 065
     Dates: start: 19980824, end: 19980824
  33. MIACALCIN [Concomitant]
  34. CILOSTAZOL [Concomitant]
  35. EVISTA [Concomitant]
  36. INSULIN [Concomitant]
  37. MAGNEVIST [Suspect]
     Route: 065
     Dates: start: 19980824, end: 19980824
  38. HUMALOG [Concomitant]
  39. COLACE [Concomitant]
  40. CONTRAST MEDIA [Suspect]
     Indication: NUCLEAR MAGNETIC RESONANCE IMAGING
     Dosage: STATED BY PT IN A PHYSICIAN'S NOTE; NO RADIOLOGY REPORT; NOT STATED IN PFS; UNKNOWN
     Route: 065
     Dates: start: 20070801, end: 20070801
  41. MULTIHANCE [Suspect]
     Indication: NUCLEAR MAGNETIC RESONANCE IMAGING
     Route: 042
     Dates: start: 20050707, end: 20050707
  42. CONTRAST MEDIA [Suspect]
     Route: 065
     Dates: start: 19980706, end: 19980706
  43. ZEMPLAR [Concomitant]
  44. TEMAZEPAM [Concomitant]
  45. SYNTHROID [Concomitant]
  46. IBUPROFEN [Concomitant]
  47. LORATADINE [Concomitant]

REACTIONS (1)
  - NEPHROGENIC SYSTEMIC FIBROSIS [None]
